FAERS Safety Report 7479075-1 (Version None)
Quarter: 2011Q2

REPORT INFORMATION
  Report Type: 
  Country: None (occurrence: None)
  Receive Date: 20110513
  Receipt Date: 20110511
  Transmission Date: 20111010
  Serious: Yes (Hospitalization)
  Sender: FDA-Public Use
  Company Number: IT-MERCK-1007ITA00043

PATIENT
  Age: 55 Year
  Sex: Female

DRUGS (2)
  1. METFORMIN [Concomitant]
     Route: 048
     Dates: start: 20041011, end: 20100714
  2. JANUVIA [Suspect]
     Indication: TYPE 2 DIABETES MELLITUS
     Route: 048
     Dates: start: 20090611

REACTIONS (1)
  - ISCHAEMIC STROKE [None]
